FAERS Safety Report 8451628 (Version 2)
Quarter: 2014Q2

REPORT INFORMATION
  Report Type: Spontaneous
  Country: US (occurrence: None)
  Receive Date: 20120216
  Receipt Date: 20140604
  Transmission Date: 20141212
  Serious: Yes (Hospitalization)
  Sender: FDA-Public Use
  Company Number: 20111129CINRY2488

PATIENT
  Age: 48 Year
  Sex: Male

DRUGS (1)
  1. CINRYZE [Suspect]
     Indication: HEREDITARY ANGIOEDEMA
     Dosage: (3 IN 1 WK), INTRAVENOUS
     Route: 042

REACTIONS (8)
  - Pain [None]
  - Nausea [None]
  - Hereditary angioedema [None]
  - Swelling [None]
  - Drug effect delayed [None]
  - Inappropriate schedule of drug administration [None]
  - Swelling face [None]
  - Extra dose administered [None]
